FAERS Safety Report 4387437-4 (Version None)
Quarter: 2004Q2

REPORT INFORMATION
  Report Type: 
  Country: None (occurrence: None)
  Receive Date: 20040623
  Receipt Date: 20040607
  Transmission Date: 20050107
  Serious: Yes (Other)
  Sender: FDA-Public Use
  Company Number: USA040464124

PATIENT
  Age: 59 Year
  Sex: Female
  Weight: 80 kg

DRUGS (9)
  1. EVISTA [Suspect]
     Indication: OSTEOPOROSIS
     Dosage: 60 G/1 DAY
     Dates: start: 20020101, end: 20031001
  2. FORTEO [Suspect]
     Indication: OSTEOPOROSIS
     Dosage: 20 UG/1 DAY
     Dates: start: 20031001
  3. SEROQUEL [Concomitant]
  4. WELLBUTRIN SR [Concomitant]
  5. AMBIEN [Concomitant]
  6. LIPITOR [Concomitant]
  7. ADVAIR DISKUS 100/50 [Concomitant]
  8. XENICAL [Concomitant]
  9. CLONAZEPAM [Concomitant]

REACTIONS (10)
  - BONE DENSITY DECREASED [None]
  - BONE PAIN [None]
  - FALL [None]
  - JOINT INJURY [None]
  - JOINT SWELLING [None]
  - LIGAMENT INJURY [None]
  - MULTIPLE FRACTURES [None]
  - PHARMACEUTICAL PRODUCT COMPLAINT [None]
  - SPINAL COMPRESSION FRACTURE [None]
  - TENDON RUPTURE [None]
